FAERS Safety Report 21563871 (Version 1)
Quarter: 2022Q4

REPORT INFORMATION
  Report Type: Spontaneous
  Country: US (occurrence: US)
  Receive Date: 20221108
  Receipt Date: 20221108
  Transmission Date: 20230112
  Serious: No
  Sender: FDA-Public Use
  Company Number: US-drreddys-SPO/USA/22/0156354

PATIENT
  Age: 31 Year
  Sex: Female

DRUGS (2)
  1. ZENATANE [Suspect]
     Active Substance: ISOTRETINOIN
     Indication: Acne
     Dosage: RMA ISSUE DATE: 01 APRIL 2022 04:05:51 PM, 05 MAY 2022 08:05:24 PM, 06 JULY 2022 04:00:37 PM, 11 AUG
  2. ZENATANE [Suspect]
     Active Substance: ISOTRETINOIN
     Dosage: RMA ISSUE DATE: 06 JUNE 2022 02:45:17 PM, 07 JUNE 2022 11:43:23 AM,

REACTIONS (1)
  - Blood triglycerides increased [Unknown]
